FAERS Safety Report 7483013-5 (Version None)
Quarter: 2011Q2

REPORT INFORMATION
  Report Type: 
  Country: None (occurrence: None)
  Receive Date: 20110516
  Receipt Date: 20110414
  Transmission Date: 20111010
  Serious: No
  Sender: FDA-Public Use
  Company Number: US-BAYER-2011-033718

PATIENT
  Age: 5 Year
  Sex: Male
  Weight: 25 kg

DRUGS (2)
  1. ALEVE (CAPLET) [Suspect]
     Indication: HEADACHE
     Dosage: 0.5 DF, ONCE
     Route: 048
     Dates: start: 20110414, end: 20110414
  2. CLARITIN [Concomitant]

REACTIONS (1)
  - NO ADVERSE EVENT [None]
